FAERS Safety Report 6943858-4 (Version None)
Quarter: 2010Q3

REPORT INFORMATION
  Report Type: 
  Country: None (occurrence: None)
  Receive Date: 20100826
  Receipt Date: 20100818
  Transmission Date: 20110219
  Serious: Yes (Hospitalization)
  Sender: FDA-Public Use
  Company Number: A0876538A

PATIENT
  Age: 65 Year
  Sex: Female

DRUGS (17)
  1. SEREVENT [Suspect]
     Indication: CHRONIC OBSTRUCTIVE PULMONARY DISEASE
     Dosage: 1PUFF PER DAY
     Route: 055
  2. COMBIVENT [Concomitant]
  3. ALBUTEROL [Concomitant]
  4. ASPIRIN [Concomitant]
  5. CLONAZEPAM [Concomitant]
  6. ACETAMINOPHEN [Concomitant]
  7. DIPHENHYDRAMINE [Concomitant]
  8. AMITRIPTYLINE HCL [Concomitant]
  9. INSULIN [Concomitant]
  10. METHOTREXATE [Concomitant]
  11. PREDNISONE [Concomitant]
  12. ARAVA [Concomitant]
  13. ALEVE (CAPLET) [Concomitant]
  14. BENICAR [Concomitant]
  15. NORVASC [Concomitant]
  16. PRAVASTATIN [Concomitant]
  17. OMEPRAZOLE [Concomitant]

REACTIONS (2)
  - PERIPHERAL VASCULAR DISORDER [None]
  - STENT PLACEMENT [None]
